FAERS Safety Report 21003004 (Version 1)
Quarter: 2022Q2

REPORT INFORMATION
  Report Type: Report from Study
  Country: US (occurrence: US)
  Receive Date: 20220624
  Receipt Date: 20220624
  Transmission Date: 20220721
  Serious: Yes (Other)
  Sender: FDA-Public Use
  Company Number: US-MYLANLABS-2022M1019139

PATIENT
  Sex: Female
  Weight: 74.84 kg

DRUGS (2)
  1. GLATIRAMER ACETATE [Suspect]
     Active Substance: GLATIRAMER ACETATE
     Indication: Multiple sclerosis
     Dosage: 40 MILLIGRAM, 3XW
     Route: 058
  2. GLATIRAMER ACETATE [Suspect]
     Active Substance: GLATIRAMER ACETATE
     Indication: Relapsing-remitting multiple sclerosis

REACTIONS (6)
  - Multiple sclerosis relapse [Recovering/Resolving]
  - Product dose omission issue [Unknown]
  - Hypoaesthesia [Unknown]
  - Limb discomfort [Unknown]
  - Fatigue [Recovering/Resolving]
  - Paraesthesia [Unknown]
